FAERS Safety Report 4714429-5 (Version None)
Quarter: 2005Q3

REPORT INFORMATION
  Report Type: 
  Country: None (occurrence: None)
  Receive Date: 20050714
  Receipt Date: 20050630
  Transmission Date: 20060218
  Serious: Yes (Hospitalization)
  Sender: FDA-Public Use
  Company Number: IL-JNJFOC-20050700399

PATIENT
  Sex: Male

DRUGS (6)
  1. DAKTARIN [Suspect]
     Indication: DRUG USE FOR UNKNOWN INDICATION
     Route: 049
  2. ASPIRIN [Concomitant]
     Route: 065
  3. ATENOLOL [Concomitant]
     Route: 065
  4. NORVASC [Concomitant]
     Route: 065
  5. DIOVAN [Concomitant]
     Route: 065
  6. MONOLONG [Concomitant]
     Route: 065

REACTIONS (4)
  - HAEMATOMA [None]
  - INTERNATIONAL NORMALISED RATIO INCREASED [None]
  - MYALGIA [None]
  - TONGUE HAEMATOMA [None]
